FAERS Safety Report 9066809 (Version 1)
Quarter: 2013Q1

REPORT INFORMATION
  Report Type: Report from Study
  Country: US (occurrence: US)
  Receive Date: 20130131
  Receipt Date: 20130131
  Transmission Date: 20140127
  Serious: No
  Sender: FDA-Public Use
  Company Number: US-ABBOTT-12P-163-1016144-00

PATIENT
  Age: 41 Year
  Sex: Female

DRUGS (9)
  1. HUMIRA [Suspect]
     Indication: CROHN^S DISEASE
     Route: 058
     Dates: start: 20120821
  2. TAPAZOLE [Concomitant]
     Indication: HYPERTHYROIDISM
     Route: 048
  3. TRAMADOL HCL [Concomitant]
     Indication: PAIN
     Route: 048
  4. PERCOCET [Concomitant]
     Indication: PAIN
     Dosage: 5/325MG
     Route: 048
  5. TEMAZEPAM [Concomitant]
     Indication: INSOMNIA
     Dosage: AT BEDTIME
     Route: 048
  6. VITAMIN D3 WITH IRON 5000 IU [Concomitant]
     Indication: ANAEMIA
     Dosage: DAILY
  7. ZINC COLONATE [Concomitant]
     Indication: PRODUCT USED FOR UNKNOWN INDICATION
  8. PARASHIELD [Concomitant]
     Indication: INSOMNIA
     Dosage: AT BEDTIME
     Route: 048
  9. PROBOULARDI [Concomitant]
     Indication: PRODUCT USED FOR UNKNOWN INDICATION
     Dosage: AT BEDTIME
     Route: 048

REACTIONS (2)
  - Weight decreased [Not Recovered/Not Resolved]
  - Drug ineffective [Not Recovered/Not Resolved]
